FAERS Safety Report 15380385 (Version 2)
Quarter: 2019Q4

REPORT INFORMATION
  Report Type: Spontaneous
  Country: US (occurrence: US)
  Receive Date: 20180913
  Receipt Date: 20191231
  Transmission Date: 20200122
  Serious: No
  Sender: FDA-Public Use
  Company Number: US-SA-2018SA255984

PATIENT
  Age: 56 Year
  Sex: Female

DRUGS (1)
  1. LANTUS SOLOSTAR [Suspect]
     Active Substance: INSULIN GLARGINE
     Indication: TYPE 2 DIABETES MELLITUS
     Dosage: 45 IU, QD
     Route: 065

REACTIONS (6)
  - Dizziness [Unknown]
  - Vertigo [Unknown]
  - Taste disorder [Unknown]
  - Feeling abnormal [Unknown]
  - Headache [Unknown]
  - Somnolence [Unknown]
